FAERS Safety Report 24343942 (Version 2)
Quarter: 2025Q2

REPORT INFORMATION
  Report Type: Spontaneous
  Country: CN (occurrence: CN)
  Receive Date: 20240920
  Receipt Date: 20250608
  Transmission Date: 20250716
  Serious: Yes (Hospitalization, Other)
  Sender: COHERUS
  Company Number: CN-SHANGHAI JUNSHI BIOSCIENCES CO., LTD.-CN2024011333

PATIENT

DRUGS (3)
  1. TORIPALIMAB [Suspect]
     Active Substance: TORIPALIMAB
     Indication: Hypopharyngeal cancer
     Route: 041
     Dates: start: 20240821, end: 20240821
  2. DOCETAXEL [Concomitant]
     Active Substance: DOCETAXEL
     Indication: Hypopharyngeal cancer
     Route: 041
     Dates: start: 20240821
  3. CISPLATIN [Concomitant]
     Active Substance: CISPLATIN
     Indication: Hypopharyngeal cancer
     Dosage: 50 MG, QD
     Route: 041
     Dates: start: 20240821

REACTIONS (3)
  - Hepatic failure [Not Recovered/Not Resolved]
  - White blood cell count decreased [Recovered/Resolved]
  - Off label use [Unknown]

NARRATIVE: CASE EVENT DATE: 20240821
